FAERS Safety Report 10240738 (Version 1)
Quarter: 2014Q2

REPORT INFORMATION
  Report Type: Spontaneous
  Country: KR (occurrence: KR)
  Receive Date: 20140617
  Receipt Date: 20140617
  Transmission Date: 20141212
  Serious: Yes (Other)
  Sender: FDA-Public Use
  Company Number: KR-MYLANLABS-2014S1013617

PATIENT
  Age: 38 Year
  Sex: Male

DRUGS (2)
  1. TRAMADOL [Suspect]
     Indication: ANALGESIC THERAPY
     Route: 065
  2. CEFIXIME [Concomitant]
     Route: 065

REACTIONS (1)
  - Restless legs syndrome [Recovered/Resolved]
